FAERS Safety Report 6535183-0 (Version None)
Quarter: 2010Q1

REPORT INFORMATION
  Report Type: 
  Country: None (occurrence: None)
  Receive Date: 20100113
  Receipt Date: 20100106
  Transmission Date: 20100710
  Serious: Yes (Life-Threatening, Other)
  Sender: FDA-Public Use
  Company Number: JP-JNJFOC-20090802705

PATIENT
  Sex: Female
  Weight: 61 kg

DRUGS (14)
  1. REMICADE [Suspect]
     Route: 042
     Dates: start: 20090313
  2. REMICADE [Suspect]
     Route: 042
     Dates: start: 20090313
  3. REMICADE [Suspect]
     Route: 042
     Dates: start: 20090313
  4. REMICADE [Suspect]
     Indication: RHEUMATOID ARTHRITIS
     Dosage: 4 TOTAL INFUSIONS
     Route: 042
     Dates: start: 20090313
  5. TOCOPHERYL NICOTINATE [Concomitant]
     Route: 048
  6. VOLTAREN [Concomitant]
     Route: 048
  7. OMEPRAZOLE [Concomitant]
     Route: 048
  8. KLARICID [Concomitant]
     Route: 048
  9. FOLIAMIN [Concomitant]
     Indication: NEOPLASM MALIGNANT
     Route: 048
  10. MUCOSTA [Concomitant]
     Route: 048
  11. ACTONEL [Concomitant]
     Route: 048
  12. RHEUMATREX [Concomitant]
     Indication: RHEUMATOID ARTHRITIS
     Route: 048
  13. PREDNISOLONE [Concomitant]
     Dosage: 4-5MG
     Route: 048
  14. LIPITOR [Concomitant]
     Route: 048

REACTIONS (1)
  - SMALL CELL LUNG CANCER STAGE UNSPECIFIED [None]
